FAERS Safety Report 24747230 (Version 1)
Quarter: 2024Q4

REPORT INFORMATION
  Report Type: Spontaneous
  Country: US (occurrence: US)
  Receive Date: 20241218
  Receipt Date: 20241218
  Transmission Date: 20250115
  Serious: Yes (Life-Threatening, Hospitalization)
  Sender: ENDO
  Company Number: US-ENDO USA, INC.-2024-050905

PATIENT
  Age: 44 Year
  Sex: Male
  Weight: 55 kg

DRUGS (1)
  1. AMITRIPTYLINE HYDROCHLORIDE [Suspect]
     Active Substance: AMITRIPTYLINE HYDROCHLORIDE
     Indication: Product used for unknown indication
     Dosage: 2.25 GRAM, UNKNOWN
     Route: 048

REACTIONS (12)
  - Loss of consciousness [Recovered/Resolved]
  - Electrocardiogram QRS complex prolonged [Recovered/Resolved]
  - Acute respiratory distress syndrome [Recovered/Resolved]
  - Respiratory failure [Recovered/Resolved]
  - Pulseless electrical activity [Recovered/Resolved]
  - Intensive care unit acquired weakness [Recovered/Resolved]
  - Acute kidney injury [Recovered/Resolved]
  - Generalised tonic-clonic seizure [Recovered/Resolved]
  - Hypotension [Recovered/Resolved]
  - Ventricular fibrillation [Recovered/Resolved]
  - Suicide attempt [Recovered/Resolved]
  - Intentional overdose [Recovered/Resolved]
